FAERS Safety Report 7415204-3 (Version None)
Quarter: 2011Q2

REPORT INFORMATION
  Report Type: 
  Country: None (occurrence: None)
  Receive Date: 20110414
  Receipt Date: 20110407
  Transmission Date: 20111010
  Serious: Yes (Other)
  Sender: FDA-Public Use
  Company Number: PHHY2011US29970

PATIENT
  Sex: Female

DRUGS (5)
  1. CALCIUM [Concomitant]
  2. VIVELLE-DOT [Suspect]
     Dosage: 0.05 MG
     Route: 062
  3. VIVELLE-DOT [Suspect]
     Dosage: 0.0375 MG
     Route: 062
  4. COMBIPATCH [Suspect]
     Route: 062
  5. ZOCOR [Concomitant]

REACTIONS (3)
  - VAGINAL HAEMORRHAGE [None]
  - UTERINE DISORDER [None]
  - DRUG INEFFECTIVE [None]
